FAERS Safety Report 5660482-4 (Version None)
Quarter: 2008Q1

REPORT INFORMATION
  Report Type: 
  Country: None (occurrence: None)
  Receive Date: 20080214
  Receipt Date: 20071023
  Transmission Date: 20080703
  Serious: Yes (Hospitalization)
  Sender: FDA-Public Use
  Company Number: ALK_00436_2007

PATIENT
  Sex: Male
  Weight: 81.1939 kg

DRUGS (4)
  1. VIVITROL [Suspect]
     Indication: ALCOHOLISM
     Dosage: (380 MG 1X/MOUTH INTRAMUSCULAR)
     Route: 030
     Dates: start: 20071022
  2. AVALIDE [Concomitant]
  3. CHANTIX [Concomitant]
  4. ZOLOFT [Concomitant]

REACTIONS (1)
  - ALCOHOL WITHDRAWAL SYNDROME [None]
